FAERS Safety Report 7556271-6 (Version None)
Quarter: 2011Q2

REPORT INFORMATION
  Report Type: 
  Country: None (occurrence: None)
  Receive Date: 20110620
  Receipt Date: 20110607
  Transmission Date: 20111010
  Serious: Yes (Hospitalization)
  Sender: FDA-Public Use
  Company Number: US-ELI_LILLY_AND_COMPANY-US201105005110

PATIENT
  Sex: Female
  Weight: 68.027 kg

DRUGS (3)
  1. HUMALOG [Suspect]
     Indication: TYPE 1 DIABETES MELLITUS
     Dosage: UNK, PRN
     Route: 058
     Dates: start: 20000101, end: 20110515
  2. HUMALOG [Suspect]
     Dosage: UNK, PRN
     Route: 058
     Dates: start: 20110501
  3. VITAMIN D [Concomitant]
     Dosage: 2000 U, QD

REACTIONS (3)
  - DRUG INEFFECTIVE [None]
  - DIABETIC KETOACIDOSIS [None]
  - BLOOD GLUCOSE INCREASED [None]
